FAERS Safety Report 10062460 (Version 2)
Quarter: 2014Q3

REPORT INFORMATION
  Report Type: Spontaneous
  Country: US (occurrence: None)
  Receive Date: 20140313
  Receipt Date: 20140912
  Transmission Date: 20150326
  Serious: Yes (Other)
  Sender: FDA-Public Use
  Company Number: 1000052376

PATIENT
  Age: 72 Year
  Sex: Male
  Weight: 122 kg

DRUGS (15)
  1. NORVASC [Concomitant]
     Active Substance: AMLODIPINE BESYLATE
  2. GLYBURIDE (GLIBENCLAMIDE) [Concomitant]
     Active Substance: GLYBURIDE
  3. SPIRIVA (TIOTROPIUM BROMIDE) [Concomitant]
  4. ZOCOR [Concomitant]
     Active Substance: SIMVASTATIN
  5. ATENOLOL. [Concomitant]
     Active Substance: ATENOLOL
  6. DALIRESP (ROFLUMILAST) [Suspect]
     Active Substance: ROFLUMILAST
     Indication: CHRONIC OBSTRUCTIVE PULMONARY DISEASE
     Dosage: 500MCG (500 MCG, 1 IN 1
     Route: 048
     Dates: start: 20120705
  7. OXYGEN. [Concomitant]
     Active Substance: OXYGEN
  8. LASIX [Concomitant]
     Active Substance: FUROSEMIDE
  9. METFORMIN [Concomitant]
     Active Substance: METFORMIN HYDROCHLORIDE
  10. ZOLOFT [Concomitant]
     Active Substance: SERTRALINE HYDROCHLORIDE
  11. INSULIN [Concomitant]
     Active Substance: INSULIN NOS
  12. LISINOPRIL. [Concomitant]
     Active Substance: LISINOPRIL
  13. IMDUR [Concomitant]
     Active Substance: ISOSORBIDE MONONITRATE
  14. ALBUTEROL. [Concomitant]
     Active Substance: ALBUTEROL
  15. LOPID [Concomitant]
     Active Substance: GEMFIBROZIL

REACTIONS (1)
  - Weight decreased [None]

NARRATIVE: CASE EVENT DATE: 201207
